FAERS Safety Report 9674111 (Version 2)
Quarter: 2013Q4

REPORT INFORMATION
  Report Type: Spontaneous
  Country: US (occurrence: US)
  Receive Date: 20131106
  Receipt Date: 20131106
  Transmission Date: 20140711
  Serious: No
  Sender: FDA-Public Use
  Company Number: US-AMGEN-USASP2013069430

PATIENT
  Age: 50 Year
  Sex: Male

DRUGS (4)
  1. ENBREL [Suspect]
     Indication: PSORIASIS
     Dosage: 50 MG, Q2WK
     Route: 058
     Dates: start: 20110914
  2. ENBREL [Suspect]
     Indication: PSORIATIC ARTHROPATHY
  3. FLUOCINONIDE [Concomitant]
     Indication: PSORIASIS
     Dosage: 0.05 %, AS NECESSARY
     Route: 061
     Dates: start: 20130509
  4. CLOBEX                             /00337102/ [Concomitant]
     Indication: PSORIASIS
     Dosage: 0.05 %, AS NECESSARY
     Route: 061
     Dates: start: 201008

REACTIONS (5)
  - Bone pain [Recovered/Resolved]
  - Gait disturbance [Unknown]
  - Headache [Not Recovered/Not Resolved]
  - Psoriasis [Not Recovered/Not Resolved]
  - Paraesthesia [Not Recovered/Not Resolved]
